FAERS Safety Report 7771167-2 (Version None)
Quarter: 2011Q3

REPORT INFORMATION
  Report Type: 
  Country: None (occurrence: None)
  Receive Date: 20110922
  Receipt Date: 20110207
  Transmission Date: 20111222
  Serious: No
  Sender: FDA-Public Use
  Company Number: US-ASTRAZENECA-2011SE07138

PATIENT
  Age: 56 Year
  Sex: Female
  Weight: 58.1 kg

DRUGS (6)
  1. PAXIL [Concomitant]
     Indication: PANIC DISORDER
  2. AMBIEN [Concomitant]
     Indication: SLEEP DISORDER
  3. SEROQUEL XR [Suspect]
     Indication: SLEEP DISORDER
     Route: 048
     Dates: start: 20100101, end: 20110101
  4. SEROQUEL XR [Suspect]
     Indication: DISABILITY
     Route: 048
     Dates: start: 20100101, end: 20110101
  5. PAXIL [Concomitant]
     Indication: DEPRESSION
  6. XANAX [Concomitant]
     Indication: AGORAPHOBIA

REACTIONS (13)
  - NAUSEA [None]
  - BREAST PAIN [None]
  - INSOMNIA [None]
  - ANXIETY [None]
  - CHEST DISCOMFORT [None]
  - VOMITING [None]
  - DECREASED APPETITE [None]
  - DRUG DOSE OMISSION [None]
  - BACK PAIN [None]
  - TEARFULNESS [None]
  - PALPITATIONS [None]
  - DIARRHOEA [None]
  - WEIGHT DECREASED [None]
